FAERS Safety Report 5366485-1 (Version None)
Quarter: 2007Q2

REPORT INFORMATION
  Report Type: 
  Country: None (occurrence: None)
  Receive Date: 20070622
  Receipt Date: 20070615
  Transmission Date: 20071010
  Serious: Yes (Other)
  Sender: FDA-Public Use
  Company Number: PHBS2006JP17712

PATIENT
  Sex: Female

DRUGS (4)
  1. DIOVAN [Suspect]
     Dosage: 40MG/DAY
     Route: 048
     Dates: start: 20040101
  2. NEO DOPASTON [Concomitant]
     Route: 048
     Dates: start: 20010101
  3. CABASER [Concomitant]
     Route: 048
  4. ARELIX [Concomitant]
     Route: 048
     Dates: start: 20010101

REACTIONS (2)
  - GAMMA-GLUTAMYLTRANSFERASE INCREASED [None]
  - HEPATIC FUNCTION ABNORMAL [None]
